FAERS Safety Report 5492856-9 (Version None)
Quarter: 2007Q4

REPORT INFORMATION
  Report Type: 
  Country: None (occurrence: None)
  Receive Date: 20071023
  Receipt Date: 20070604
  Transmission Date: 20080405
  Serious: No
  Sender: FDA-Public Use
  Company Number: US-BRISTOL-MYERS SQUIBB COMPANY-13696570

PATIENT
  Age: 8 Decade
  Sex: Female
  Weight: 60 kg

DRUGS (9)
  1. EMSAM [Suspect]
     Indication: ANXIETY
     Route: 062
     Dates: start: 20070222
  2. EMSAM [Suspect]
     Indication: DEPRESSION
     Route: 062
     Dates: start: 20070222
  3. BUSPAR [Suspect]
     Dates: start: 20040101
  4. NEURONTIN [Concomitant]
  5. COMPAZINE [Concomitant]
  6. CLONAZEPAM [Concomitant]
  7. HYDROCORTISONE [Concomitant]
  8. LEXAPRO [Concomitant]
  9. XANAX [Concomitant]

REACTIONS (4)
  - DRUG HYPERSENSITIVITY [None]
  - PRURITUS [None]
  - RASH [None]
  - VOMITING [None]
